FAERS Safety Report 6981095-8 (Version None)
Quarter: 2010Q3

REPORT INFORMATION
  Report Type: 
  Country: None (occurrence: None)
  Receive Date: 20100914
  Receipt Date: 20100902
  Transmission Date: 20110219
  Serious: Yes (Life-Threatening, Hospitalization)
  Sender: FDA-Public Use
  Company Number: FR-MERCK-1006FRA00091

PATIENT
  Age: 81 Year
  Sex: Female
  Weight: 61 kg

DRUGS (7)
  1. JANUVIA [Suspect]
     Indication: TYPE 2 DIABETES MELLITUS
     Route: 048
     Dates: start: 20090622, end: 20100527
  2. URAPIDIL [Concomitant]
     Indication: HYPERTENSION
     Route: 048
  3. PERINDOPRIL ARGININE [Concomitant]
     Indication: HYPERTENSION
     Route: 048
  4. CHONDROITIN SULFATE SODIUM [Concomitant]
     Indication: OSTEOARTHRITIS
     Route: 048
  5. DIOSMIN [Concomitant]
     Indication: VENOUS INSUFFICIENCY
     Route: 048
  6. LOPERAMIDE HYDROCHLORIDE [Concomitant]
     Indication: DIARRHOEA
     Route: 048
  7. CIPROFLOXACIN HYDROCHLORIDE [Concomitant]
     Indication: EYE INFECTION
     Route: 047

REACTIONS (4)
  - CYTOLYTIC HEPATITIS [None]
  - GAIT DISTURBANCE [None]
  - PANCREATIC INSUFFICIENCY [None]
  - PANCREATITIS NECROTISING [None]
